FAERS Safety Report 10339921 (Version 2)
Quarter: 2014Q3

REPORT INFORMATION
  Report Type: Spontaneous
  Country: IL (occurrence: IL)
  Receive Date: 20140724
  Receipt Date: 20140807
  Transmission Date: 20150326
  Serious: Yes (Hospitalization)
  Sender: FDA-Public Use
  Company Number: IL-BAXTER-2014BAX040120

PATIENT
  Age: 5 Month
  Sex: Male
  Weight: 6.1 kg

DRUGS (14)
  1. CLINOLEIC  20% [Suspect]
     Active Substance: OLIVE OIL\SOYBEAN OIL
     Indication: SHORT-BOWEL SYNDROME
     Dosage: 500 ML
     Route: 042
     Dates: start: 201407
  2. DEXTROSE 50% USP [Suspect]
     Active Substance: DEXTROSE
     Indication: SHORT-BOWEL SYNDROME
     Route: 042
     Dates: start: 201407
  3. PEDITRACE [Suspect]
     Active Substance: CUPRIC CHLORIDE\MANGANESE CHLORIDE\POTASSIUM IODIDE\SODIUM FLUORIDE\SODIUM SELENITE\ZINC CHLORIDE
     Indication: SHORT-BOWEL SYNDROME
     Route: 042
     Dates: start: 201407
  4. SOD-GLYCERPHOSP [Suspect]
     Active Substance: SODIUM GLYCEROPHOSPHATE ANHYDROUS
     Indication: SHORT-BOWEL SYNDROME
     Dosage: 0.5L 29G
     Route: 042
     Dates: start: 201407
  5. STERILE WATER [Suspect]
     Active Substance: WATER
     Indication: SHORT-BOWEL SYNDROME
     Dosage: 29G
     Route: 042
     Dates: start: 201407
  6. STERILE WATER [Suspect]
     Active Substance: WATER
     Dosage: 29G
     Route: 042
     Dates: start: 201407
  7. SODIUM CHLORIDE 23.4% INJ [Suspect]
     Active Substance: SODIUM CHLORIDE
     Indication: SHORT-BOWEL SYNDROME
     Dosage: 100ML 29G
     Route: 042
     Dates: start: 201407
  8. CALCIUM GLUCONAT [Suspect]
     Active Substance: CALCIUM GLUCONATE
     Indication: SHORT-BOWEL SYNDROME
     Dosage: 100ML 29
     Route: 042
     Dates: start: 201407
  9. PRIM?NE 10% [Suspect]
     Active Substance: AMINO ACIDS
     Route: 042
     Dates: start: 201407
  10. PRIM?NE 10% [Suspect]
     Active Substance: AMINO ACIDS
     Indication: SHORT-BOWEL SYNDROME
     Route: 042
     Dates: start: 201407
  11. MAGNESIUM SULPHA 50% [Suspect]
     Active Substance: MAGNESIUM SULFATE
     Indication: SHORT-BOWEL SYNDROME
     Dosage: 100ML 29G
     Route: 042
     Dates: start: 201407
  12. POTASSIUM CHLORIDE. [Suspect]
     Active Substance: POTASSIUM CHLORIDE
     Indication: SHORT-BOWEL SYNDROME
     Dosage: 500ML 29G
     Route: 042
     Dates: start: 201407
  13. VITALIPID N INFANT [Suspect]
     Active Substance: ERGOCALCIFEROL\PHYTONADIONE\TOCOPHEROL\VITAMIN A PALMITATE
     Indication: SHORT-BOWEL SYNDROME
     Route: 042
     Dates: start: 201407
  14. SOLUVIT N AMP [Suspect]
     Active Substance: VITAMINS
     Indication: SHORT-BOWEL SYNDROME
     Route: 042
     Dates: start: 201407

REACTIONS (1)
  - Pantoea agglomerans infection [Recovered/Resolved]

NARRATIVE: CASE EVENT DATE: 20140709
